FAERS Safety Report 16569539 (Version 3)
Quarter: 2019Q3

REPORT INFORMATION
  Report Type: Report from Study
  Country: US (occurrence: US)
  Receive Date: 20190715
  Receipt Date: 20190912
  Transmission Date: 20191004
  Serious: No
  Sender: FDA-Public Use
  Company Number: PHEH2019US028537

PATIENT
  Sex: Male

DRUGS (1)
  1. ENTRESTO [Suspect]
     Active Substance: SACUBITRIL\VALSARTAN
     Indication: PRODUCT USED FOR UNKNOWN INDICATION
     Dosage: 2 DF, UNK
     Route: 048

REACTIONS (6)
  - Neuralgia [Unknown]
  - Fatigue [Unknown]
  - Chest pain [Unknown]
  - Blood pressure fluctuation [Unknown]
  - Discomfort [Unknown]
  - Blood pressure increased [Unknown]
